FAERS Safety Report 9318121 (Version 1)
Quarter: 2013Q2

REPORT INFORMATION
  Report Type: Spontaneous
  Country: US (occurrence: US)
  Receive Date: 20130530
  Receipt Date: 20130530
  Transmission Date: 20140414
  Serious: No
  Sender: FDA-Public Use
  Company Number: US-NOVEN-12US005505

PATIENT
  Age: 10 Year
  Sex: Male
  Weight: 46.26 kg

DRUGS (4)
  1. DAYTRANA [Suspect]
     Indication: ATTENTION DEFICIT/HYPERACTIVITY DISORDER
     Dosage: 30 MG, UNK
     Route: 061
     Dates: start: 20120912
  2. DAYTRANA [Suspect]
     Dosage: 30 MG, UNK
     Route: 062
  3. INTUNIV [Concomitant]
     Indication: ATTENTION DEFICIT/HYPERACTIVITY DISORDER
     Dosage: 1-2 MG, UNK
     Route: 048
  4. MELATONIN [Concomitant]
     Indication: ATTENTION DEFICIT/HYPERACTIVITY DISORDER
     Dosage: 3 MG, PRN
     Route: 048

REACTIONS (3)
  - Educational problem [Recovered/Resolved]
  - Tic [Not Recovered/Not Resolved]
  - Trichotillomania [Not Recovered/Not Resolved]
